FAERS Safety Report 11571955 (Version 1)
Quarter: 2015Q3

REPORT INFORMATION
  Report Type: Spontaneous
  Country: US (occurrence: US)
  Receive Date: 20150916
  Receipt Date: 20150916
  Transmission Date: 20151125
  Serious: No
  Sender: FDA-Public Use
  Company Number: US-ELI_LILLY_AND_COMPANY-US200910001241

PATIENT
  Age: 62 Year
  Sex: Female

DRUGS (2)
  1. FORTEO [Suspect]
     Active Substance: TERIPARATIDE
     Indication: OSTEOPOROSIS
     Dosage: 20 UG, WEEKLY (1/W)
     Dates: start: 20091001, end: 20091014
  2. FORTEO [Suspect]
     Active Substance: TERIPARATIDE
     Dosage: 20 UG, DAILY (1/D)
     Dates: start: 20091015

REACTIONS (14)
  - Asthenia [Unknown]
  - Nausea [Recovered/Resolved]
  - Intervertebral disc protrusion [Recovered/Resolved]
  - Gait disturbance [Recovered/Resolved]
  - Blood calcium increased [Unknown]
  - Restless legs syndrome [Recovered/Resolved]
  - Pain [Recovered/Resolved]
  - Muscle spasms [Recovered/Resolved]
  - Posture abnormal [Recovered/Resolved]
  - Walking aid user [Recovered/Resolved]
  - Dysstasia [Recovering/Resolving]
  - Migraine [Not Recovered/Not Resolved]
  - Inappropriate schedule of drug administration [Recovered/Resolved]
  - Dizziness [Unknown]

NARRATIVE: CASE EVENT DATE: 2009
